FAERS Safety Report 12045489 (Version 1)
Quarter: 2016Q1

REPORT INFORMATION
  Report Type: Spontaneous
  Country: US (occurrence: US)
  Receive Date: 20160208
  Receipt Date: 20160208
  Transmission Date: 20160526
  Serious: No
  Sender: FDA-Public Use
  Company Number: US-AEGERION PHARMACEUTICAL INC.-AEGR002076

PATIENT

DRUGS (1)
  1. METRELEPTIN [Suspect]
     Active Substance: METRELEPTIN
     Indication: CONGENITAL GENERALISED LIPODYSTROPHY
     Dosage: 0.01-0.04 MG/KG, QD
     Route: 058

REACTIONS (1)
  - Injection site reaction [Recovered/Resolved]
